FAERS Safety Report 10937471 (Version 2)
Quarter: 2015Q2

REPORT INFORMATION
  Report Type: Spontaneous
  Country: US (occurrence: US)
  Receive Date: 20150321
  Receipt Date: 20150525
  Transmission Date: 20150821
  Serious: No
  Sender: FDA-Public Use
  Company Number: US-JNJFOC-20120104423

PATIENT
  Age: 41 Year
  Sex: Male
  Weight: 129.27 kg

DRUGS (6)
  1. STELARA [Suspect]
     Active Substance: USTEKINUMAB
     Indication: PSORIASIS
     Route: 058
     Dates: start: 2010
  2. ROBITUSSIN AC [Concomitant]
     Indication: UPPER RESPIRATORY TRACT INFECTION
     Route: 065
     Dates: start: 20111227
  3. STELARA [Suspect]
     Active Substance: USTEKINUMAB
     Indication: PSORIASIS
     Dosage: 6TH INJECTION
     Route: 058
     Dates: start: 20120106
  4. AZITHROMYCIN [Concomitant]
     Active Substance: AZITHROMYCIN ANHYDROUS
     Indication: UPPER RESPIRATORY TRACT INFECTION
     Route: 065
     Dates: start: 20111227
  5. STELARA [Suspect]
     Active Substance: USTEKINUMAB
     Indication: PSORIASIS
     Route: 058
     Dates: start: 201109
  6. ALBUTEROL. [Concomitant]
     Active Substance: ALBUTEROL
     Indication: UPPER RESPIRATORY TRACT INFECTION
     Route: 055
     Dates: start: 20111227

REACTIONS (2)
  - Injection site pain [Recovering/Resolving]
  - Dermatitis [Recovered/Resolved]

NARRATIVE: CASE EVENT DATE: 201201
